FAERS Safety Report 21018574 (Version 1)
Quarter: 2022Q2

REPORT INFORMATION
  Report Type: Report from Study
  Country: FR (occurrence: FR)
  Receive Date: 20220628
  Receipt Date: 20220628
  Transmission Date: 20220721
  Serious: Yes (Other)
  Sender: FDA-Public Use
  Company Number: FR-ABBVIE-22K-056-4448706-00

PATIENT
  Age: 76 Year
  Sex: Male
  Weight: 53.4 kg

DRUGS (2)
  1. CARBIDOPA\LEVODOPA [Suspect]
     Active Substance: CARBIDOPA\LEVODOPA
     Indication: Parkinson^s disease
     Route: 050
     Dates: start: 2018
  2. CARBIDOPA\LEVODOPA [Suspect]
     Active Substance: CARBIDOPA\LEVODOPA

REACTIONS (5)
  - Malnutrition [Unknown]
  - Skin disorder [Unknown]
  - Stoma complication [Unknown]
  - Device issue [Unknown]
  - Device material issue [Unknown]

NARRATIVE: CASE EVENT DATE: 20220623
